FAERS Safety Report 8064395-2 (Version None)
Quarter: 2012Q1

REPORT INFORMATION
  Report Type: 
  Country: None (occurrence: None)
  Receive Date: 20120123
  Receipt Date: 20120112
  Transmission Date: 20120608
  Serious: Yes (Life-Threatening, Other)
  Sender: FDA-Public Use
  Company Number: GB-CUBIST-2011S1000509

PATIENT
  Age: 74 Year
  Sex: Male

DRUGS (1)
  1. CUBICIN [Suspect]
     Indication: ENDOCARDITIS STAPHYLOCOCCAL
     Route: 042
     Dates: start: 20110625, end: 20110727

REACTIONS (6)
  - PATHOGEN RESISTANCE [None]
  - SEPSIS [None]
  - NO THERAPEUTIC RESPONSE [None]
  - STAPHYLOCOCCAL BACTERAEMIA [None]
  - ENDOCARDITIS [None]
  - DISEASE PROGRESSION [None]
